FAERS Safety Report 11697739 (Version 3)
Quarter: 2017Q2

REPORT INFORMATION
  Report Type: Spontaneous
  Country: US (occurrence: US)
  Receive Date: 20151104
  Receipt Date: 20170601
  Transmission Date: 20170829
  Serious: Yes (Other)
  Sender: FDA-Public Use
  Company Number: US-PFIZER INC-2015367751

PATIENT
  Age: 44 Year
  Sex: Female
  Weight: 52 kg

DRUGS (5)
  1. NEURONTIN [Concomitant]
     Active Substance: GABAPENTIN
     Indication: INTERVERTEBRAL DISC PROTRUSION
     Dosage: 200 MG, UNK
     Dates: start: 2004
  2. IBUPROFEN. [Concomitant]
     Active Substance: IBUPROFEN
     Indication: SWELLING
     Dosage: 800 MG, 3-5 TIMES DAILY
     Dates: start: 2004
  3. NEURONTIN [Concomitant]
     Active Substance: GABAPENTIN
     Indication: PAIN
     Dosage: 800 MG, 3-5 TIMES DAILY
  4. NORCO [Concomitant]
     Active Substance: ACETAMINOPHEN\HYDROCODONE BITARTRATE
     Indication: ASTHENIA
     Dosage: 10 MG, 1X/DAY
     Dates: start: 2012
  5. PRISTIQ EXTENDED-RELEASE [Suspect]
     Active Substance: DESVENLAFAXINE SUCCINATE
     Indication: DEPRESSION
     Dosage: 100 MG, 1X/DAY, IN THE MORNING
     Route: 048
     Dates: start: 2012

REACTIONS (6)
  - Dizziness [Not Recovered/Not Resolved]
  - Euphoric mood [Unknown]
  - Vertigo [Unknown]
  - Coordination abnormal [Unknown]
  - Personality disorder [Unknown]
  - Ear neoplasm malignant [Unknown]

NARRATIVE: CASE EVENT DATE: 20151027
